FAERS Safety Report 13145820 (Version 1)
Quarter: 2017Q1

REPORT INFORMATION
  Report Type: Spontaneous
  Country: US (occurrence: US)
  Receive Date: 20170124
  Receipt Date: 20170124
  Transmission Date: 20170428
  Serious: Yes (Life-Threatening, Hospitalization, Disabling, Other)
  Sender: FDA-Public Use
  Company Number: L-1452

PATIENT
  Age: 8 Month
  Sex: Male
  Weight: 8.8 kg

DRUGS (13)
  1. MIDAZOLAM [Concomitant]
     Active Substance: MIDAZOLAM HYDROCHLORIDE
  2. D51/4NS [Concomitant]
  3. POTASSIUM CHLORIDE. [Concomitant]
     Active Substance: POTASSIUM CHLORIDE
  4. CEFTRIAXONE. [Concomitant]
     Active Substance: CEFTRIAXONE
  5. SALINE FLUID BOLUS [Concomitant]
  6. ACYCLOVIR. [Concomitant]
     Active Substance: ACYCLOVIR
  7. FENTANYL. [Concomitant]
     Active Substance: FENTANYL
  8. ATROPINE. [Concomitant]
     Active Substance: ATROPINE
  9. BABYBIG [Suspect]
     Active Substance: HUMAN BOTULINUM NEUROTOXIN A/B IMMUNE GLOBULIN
     Indication: BOTULISM
     Route: 042
     Dates: start: 20160905, end: 20160905
  10. VANCOMYCIN HCL [Concomitant]
     Active Substance: VANCOMYCIN HYDROCHLORIDE
  11. EDROPHONIUM [Concomitant]
  12. RANITIDINE. [Concomitant]
     Active Substance: RANITIDINE
  13. ARTIFICAL TEARS [Concomitant]
     Active Substance: GLYCERIN\HYPROMELLOSE 2910 (15 MPA.S)\POLYETHYLENE GLYCOL 400\PROPYLENE GLYCOL

REACTIONS (5)
  - Hypertension [Recovered/Resolved]
  - Oxygen saturation decreased [Recovered/Resolved with Sequelae]
  - Hyperthermia [Recovered/Resolved with Sequelae]
  - Tachycardia [Recovered/Resolved]
  - Status epilepticus [Recovered/Resolved with Sequelae]

NARRATIVE: CASE EVENT DATE: 20160906
